FAERS Safety Report 6981635-9 (Version None)
Quarter: 2010Q3

REPORT INFORMATION
  Report Type: 
  Country: None (occurrence: None)
  Receive Date: 20100914
  Receipt Date: 20090803
  Transmission Date: 20110219
  Serious: No
  Sender: FDA-Public Use
  Company Number: US-PFIZER INC-2009249875

PATIENT
  Sex: Female
  Weight: 56.689 kg

DRUGS (3)
  1. LYRICA [Suspect]
     Indication: BACK PAIN
     Dosage: 75 MG, 2X/DAY
     Route: 048
     Dates: start: 20080101
  2. AMBIEN [Concomitant]
  3. BUPRENORPHINE HCL AND NALOXONE HCL [Concomitant]
     Dosage: UNK

REACTIONS (2)
  - INTENTIONAL DRUG MISUSE [None]
  - TENDONITIS [None]
